FAERS Safety Report 4806812-4 (Version None)
Quarter: 2005Q4

REPORT INFORMATION
  Report Type: 
  Country: None (occurrence: None)
  Receive Date: 20051019
  Receipt Date: 20051006
  Transmission Date: 20060501
  Serious: Yes (Hospitalization)
  Sender: FDA-Public Use
  Company Number: 2005139464

PATIENT
  Age: 36 Year
  Sex: Female
  Weight: 83 kg

DRUGS (5)
  1. CELECOXIB (CELECOXIB) [Suspect]
     Indication: OSTEOARTHRITIS
     Dosage: 200 MG (100 MG, 2 IN 1 D), ORAL
     Route: 048
     Dates: start: 20050610, end: 20050829
  2. GABAPENTIN [Concomitant]
  3. TRAMADOL HCL [Concomitant]
  4. WARFARIN SODIUM [Concomitant]
  5. PARACETAMOL (PARACETAMOL) [Concomitant]

REACTIONS (2)
  - IMPAIRED HEALING [None]
  - SKIN ULCER [None]
